FAERS Safety Report 23938515 (Version 1)
Quarter: 2024Q2

REPORT INFORMATION
  Report Type: Spontaneous
  Country: US (occurrence: US)
  Receive Date: 20240604
  Receipt Date: 20240604
  Transmission Date: 20240716
  Serious: Yes (Other)
  Sender: FDA-Public Use
  Company Number: US-PFIZER INC-PV202400072593

PATIENT
  Age: 9 Year
  Sex: Female

DRUGS (1)
  1. DIFLUCAN [Suspect]
     Active Substance: FLUCONAZOLE
     Dosage: 80 MG, 1X/DAY
     Route: 048

REACTIONS (4)
  - Chronic kidney disease [Unknown]
  - Hypertension [Unknown]
  - Proteinuria [Unknown]
  - Short stature [Unknown]
